FAERS Safety Report 22176390 (Version 2)
Quarter: 2023Q2

REPORT INFORMATION
  Report Type: Report from Study
  Country: IT (occurrence: IT)
  Receive Date: 20230405
  Receipt Date: 20230623
  Transmission Date: 20230721
  Serious: Yes (Hospitalization, Other)
  Sender: FDA-Public Use
  Company Number: IT-AstraZeneca-2023A075392

PATIENT
  Age: 46 Year
  Sex: Female
  Weight: 97 kg

DRUGS (9)
  1. FAM-TRASTUZUMAB DERUXTECAN-NXKI [Suspect]
     Active Substance: FAM-TRASTUZUMAB DERUXTECAN-NXKI
     Indication: Breast cancer metastatic
     Dosage: 5.4 MG/KG
     Route: 042
     Dates: start: 20220629, end: 20230207
  2. PANTOPRAZOLE SODIUM [Concomitant]
     Active Substance: PANTOPRAZOLE SODIUM
     Indication: Prophylaxis
     Dosage: 40
     Route: 048
     Dates: start: 20180501
  3. LEVETIRACETAM [Concomitant]
     Active Substance: LEVETIRACETAM
     Indication: Prophylaxis
     Dosage: 1000
     Route: 048
     Dates: start: 20180501
  4. POTASSIUM CHLORIDE [Concomitant]
     Active Substance: POTASSIUM CHLORIDE
     Indication: Supplementation therapy
     Dosage: 04
     Route: 048
     Dates: start: 20220530
  5. LYRICA [Concomitant]
     Active Substance: PREGABALIN
     Indication: Metastasis
     Dosage: 75
     Route: 048
     Dates: start: 20220401
  6. LYRICA [Concomitant]
     Active Substance: PREGABALIN
     Dosage: 150
     Route: 048
     Dates: start: 20220401
  7. ASCORBIC ACID\FERRIC PYROPHOSPHATE [Concomitant]
     Active Substance: ASCORBIC ACID\FERRIC PYROPHOSPHATE
     Indication: Anaemia
     Dosage: 1
     Route: 048
     Dates: start: 20220530
  8. TRIPTORELIN ACETATE [Concomitant]
     Active Substance: TRIPTORELIN ACETATE
     Indication: Prophylaxis
     Dosage: 3.75 MG
     Route: 030
     Dates: start: 20160301
  9. CETIRIZINE HYDROCHLORIDE [Concomitant]
     Active Substance: CETIRIZINE HYDROCHLORIDE
     Indication: Prophylaxis
     Dosage: 10 MG
     Route: 048
     Dates: start: 20220222

REACTIONS (1)
  - Drug-induced liver injury [Recovered/Resolved]

NARRATIVE: CASE EVENT DATE: 20230320
